FAERS Safety Report 9931754 (Version 2)
Quarter: 2014Q1

REPORT INFORMATION
  Report Type: Spontaneous
  Country: FR (occurrence: FR)
  Receive Date: 20140228
  Receipt Date: 20140312
  Transmission Date: 20141002
  Serious: Yes (Hospitalization)
  Sender: FDA-Public Use
  Company Number: FR-JNJFOC-20140213058

PATIENT
  Age: 27 Year
  Sex: Female

DRUGS (6)
  1. EPITOMAX [Suspect]
     Indication: EPILEPSY
     Route: 048
     Dates: start: 201312, end: 20140130
  2. DEPAKINE [Suspect]
     Indication: EPILEPSY
     Route: 048
     Dates: end: 201402
  3. DEPAKINE [Suspect]
     Indication: EPILEPSY
     Route: 048
     Dates: start: 2012
  4. KEPPRA [Suspect]
     Indication: PRODUCT USED FOR UNKNOWN INDICATION
     Route: 065
     Dates: start: 201309
  5. IMOVANE [Concomitant]
     Route: 065
  6. DIFFU K [Concomitant]
     Route: 065

REACTIONS (5)
  - Hepatocellular injury [Recovering/Resolving]
  - Respiratory alkalosis [Recovering/Resolving]
  - Gastroenteritis [Unknown]
  - Opsoclonus myoclonus [Unknown]
  - Hyperlactacidaemia [Unknown]
